FAERS Safety Report 6303845-6 (Version None)
Quarter: 2009Q3

REPORT INFORMATION
  Report Type: 
  Country: None (occurrence: None)
  Receive Date: 20090807
  Receipt Date: 20090807
  Transmission Date: 20100115
  Serious: Yes (Death)
  Sender: FDA-Public Use
  Company Number: None

PATIENT
  Age: 61 Year
  Sex: Male
  Weight: 92 kg

DRUGS (2)
  1. BUSULFAN [Suspect]
     Indication: STEM CELL TRANSPLANT
     Dosage: MG, EVERY DAY, IV
     Route: 042
     Dates: start: 20090227, end: 20090302
  2. CYCLOPHOSPHAMIDE [Suspect]
     Indication: STEM CELL TRANSPLANT
     Dosage: 4300 MG, EVERY DAY, IV
     Route: 042
     Dates: start: 20090225, end: 20090226

REACTIONS (2)
  - ENCEPHALOPATHY [None]
  - HEPATIC FAILURE [None]
